FAERS Safety Report 16351173 (Version 1)
Quarter: 2019Q2

REPORT INFORMATION
  Report Type: Spontaneous
  Country: JP (occurrence: JP)
  Receive Date: 20190524
  Receipt Date: 20190524
  Transmission Date: 20190711
  Serious: Yes (Life-Threatening)
  Sender: FDA-Public Use
  Company Number: JP-ROCHE-2316202

PATIENT
  Age: 55 Year
  Sex: Female
  Weight: 50 kg

DRUGS (15)
  1. OXALIPLATIN. [Suspect]
     Active Substance: OXALIPLATIN
     Dosage: ONCE DOSAGE: 50%
     Route: 041
     Dates: start: 2017, end: 2018
  2. LEVOFOLINATE [LEVOFOLINIC ACID] [Suspect]
     Active Substance: LEVOLEUCOVORIN
     Dosage: ONCE DOSAGE: 50%
     Route: 041
     Dates: start: 2017, end: 2018
  3. LEVOFOLINATE [LEVOFOLINIC ACID] [Suspect]
     Active Substance: LEVOLEUCOVORIN
     Dosage: ONCE DOSAGE: 35%
     Route: 041
     Dates: start: 2018, end: 2019
  4. AVASTIN [Suspect]
     Active Substance: BEVACIZUMAB
     Indication: COLON CANCER
     Route: 042
     Dates: start: 201201, end: 2017
  5. FLUOROURACIL. [Suspect]
     Active Substance: FLUOROURACIL
     Indication: COLON CANCER
     Route: 040
     Dates: start: 201201, end: 2017
  6. OXALIPLATIN. [Suspect]
     Active Substance: OXALIPLATIN
     Dosage: ONCE DOSAGE: 35%
     Route: 041
     Dates: start: 2018, end: 2019
  7. FLUOROURACIL. [Suspect]
     Active Substance: FLUOROURACIL
     Route: 041
     Dates: start: 201201, end: 2017
  8. LEVOFOLINATE [LEVOFOLINIC ACID] [Suspect]
     Active Substance: LEVOLEUCOVORIN
     Indication: COLON CANCER
     Route: 041
     Dates: start: 201201, end: 2017
  9. AVASTIN [Suspect]
     Active Substance: BEVACIZUMAB
     Route: 041
     Dates: start: 2018, end: 2019
  10. FLUOROURACIL. [Suspect]
     Active Substance: FLUOROURACIL
     Dosage: ONCE DOSAGE: 50%
     Route: 040
     Dates: start: 2017, end: 2018
  11. FLUOROURACIL. [Suspect]
     Active Substance: FLUOROURACIL
     Dosage: ONCE DOSAGE: 35%
     Route: 040
     Dates: start: 2018, end: 2019
  12. AVASTIN [Suspect]
     Active Substance: BEVACIZUMAB
     Route: 041
     Dates: start: 2017, end: 2018
  13. OXALIPLATIN. [Suspect]
     Active Substance: OXALIPLATIN
     Indication: COLON CANCER
     Route: 041
     Dates: start: 201201, end: 2017
  14. FLUOROURACIL. [Suspect]
     Active Substance: FLUOROURACIL
     Dosage: ONCE DOSAGE: 50%
     Route: 041
     Dates: start: 2017, end: 2018
  15. FLUOROURACIL. [Suspect]
     Active Substance: FLUOROURACIL
     Dosage: ONCE DOSAGE: 35%
     Route: 041
     Dates: start: 2018, end: 2019

REACTIONS (4)
  - Disseminated intravascular coagulation [Recovering/Resolving]
  - Renal failure [Recovering/Resolving]
  - Jaundice [Recovered/Resolved]
  - Hepatic failure [Recovering/Resolving]

NARRATIVE: CASE EVENT DATE: 20190402
